FAERS Safety Report 24903131 (Version 2)
Quarter: 2025Q4

REPORT INFORMATION
  Report Type: Spontaneous
  Country: EU (occurrence: EU)
  Receive Date: 20250130
  Receipt Date: 20251125
  Transmission Date: 20260117
  Serious: Yes (Hospitalization)
  Sender: RANBAXY
  Company Number: EU-SUN PHARMACEUTICAL INDUSTRIES LTD-2025RR-490863

PATIENT
  Age: 61 Year
  Sex: Male
  Weight: 118 kg

DRUGS (8)
  1. LANSOPRAZOLE [Suspect]
     Active Substance: LANSOPRAZOLE
     Indication: Mitral valve incompetence
     Dosage: 15 MILLIGRAM, DAILY
     Route: 048
     Dates: start: 20240429, end: 20241113
  2. BISOPROLOL [Suspect]
     Active Substance: BISOPROLOL
     Indication: Mitral valve incompetence
     Dosage: 5 MILLIGRAM, DAILY
     Route: 048
     Dates: start: 20240429
  3. BISOPROLOL [Suspect]
     Active Substance: BISOPROLOL
     Dosage: 10 MILLIGRAM, DAILY
     Route: 048
     Dates: start: 20240928
  4. ENTRESTO [Suspect]
     Active Substance: SACUBITRIL\VALSARTAN
     Indication: Mitral valve incompetence
     Dosage: 1 DOSAGE FORM, DAILY
     Route: 048
     Dates: start: 20240927
  5. WARFARIN SODIUM [Suspect]
     Active Substance: WARFARIN SODIUM
     Indication: Mitral valve incompetence
     Dosage: 1 DOSAGE FORM, DAILY
     Route: 048
     Dates: start: 20240906
  6. JARDIANCE [Suspect]
     Active Substance: EMPAGLIFLOZIN
     Indication: Mitral valve incompetence
     Dosage: 10 MILLIGRAM, DAILY
     Route: 048
     Dates: start: 20240927, end: 20241113
  7. LOVENOX [Suspect]
     Active Substance: ENOXAPARIN SODIUM
     Indication: Thrombosis prophylaxis
     Dosage: UNK
     Route: 058
     Dates: start: 20240916
  8. EPLERENONE [Suspect]
     Active Substance: EPLERENONE
     Indication: Mitral valve incompetence
     Dosage: UNK
     Route: 048
     Dates: end: 20241113

REACTIONS (2)
  - Neutropenia [Not Recovered/Not Resolved]
  - Agranulocytosis [Not Recovered/Not Resolved]

NARRATIVE: CASE EVENT DATE: 20240507
